FAERS Safety Report 20530905 (Version 1)
Quarter: 2022Q1

REPORT INFORMATION
  Report Type: Spontaneous
  Country: US (occurrence: US)
  Receive Date: 20220301
  Receipt Date: 20220301
  Transmission Date: 20220424
  Serious: No
  Sender: FDA-Public Use
  Company Number: US-IGSA-BIG0013118

PATIENT
  Age: 68 Year
  Sex: Female
  Weight: 96 kg

DRUGS (29)
  1. PROLASTIN-C LIQUID [Suspect]
     Active Substance: .ALPHA.1-PROTEINASE INHIBITOR HUMAN
     Indication: Alpha-1 antitrypsin deficiency
     Dosage: 5760 MILLIGRAM, Q.WK.
     Route: 042
     Dates: start: 20210120, end: 20210126
  2. PROLASTIN-C LIQUID [Suspect]
     Active Substance: .ALPHA.1-PROTEINASE INHIBITOR HUMAN
     Dosage: 5760 MILLIGRAM, Q.WK.
     Route: 042
     Dates: start: 20210126, end: 20210126
  3. PROLASTIN-C LIQUID [Suspect]
     Active Substance: .ALPHA.1-PROTEINASE INHIBITOR HUMAN
     Dosage: 5760 MILLIGRAM, Q.WK.
     Route: 042
     Dates: start: 20181120, end: 20210126
  4. ADVAIR HFA [Concomitant]
     Active Substance: FLUTICASONE PROPIONATE\SALMETEROL XINAFOATE
  5. DUONEB [Concomitant]
     Active Substance: ALBUTEROL SULFATE\IPRATROPIUM BROMIDE
  6. ALENDRONATE [Concomitant]
     Active Substance: ALENDRONATE SODIUM
  7. AMLODIPINE [Concomitant]
     Active Substance: AMLODIPINE BESYLATE
  8. ATELVIA [Concomitant]
     Active Substance: RISEDRONATE SODIUM
  9. CALCIUM [Concomitant]
     Active Substance: CALCIUM
  10. ERGOCALCIFEROL [Concomitant]
     Active Substance: ERGOCALCIFEROL
  11. ESCITALOPRAM [Concomitant]
     Active Substance: ESCITALOPRAM OXALATE
  12. LASIX [Concomitant]
     Active Substance: FUROSEMIDE
  13. LOSARTAN [Concomitant]
     Active Substance: LOSARTAN
  14. NEXIUM [Concomitant]
     Active Substance: ESOMEPRAZOLE MAGNESIUM
  15. PRAVASTATIN [Concomitant]
     Active Substance: PRAVASTATIN
  16. FLUTICASONE PROPIONATE [Concomitant]
     Active Substance: FLUTICASONE PROPIONATE
  17. RISPERIDONE [Concomitant]
     Active Substance: RISPERIDONE
  18. SPIRIVA [Concomitant]
     Active Substance: TIOTROPIUM BROMIDE MONOHYDRATE
  19. ZETIA [Concomitant]
     Active Substance: EZETIMIBE
  20. FOLIC ACID [Concomitant]
     Active Substance: FOLIC ACID
  21. METHOTREXATE [Concomitant]
     Active Substance: METHOTREXATE
  22. CARAFATE [Concomitant]
     Active Substance: SUCRALFATE
  23. FLUTICASONE PROPIONATE [Concomitant]
     Active Substance: FLUTICASONE PROPIONATE
  24. PREDNISONE [Concomitant]
     Active Substance: PREDNISONE
  25. ALBUTEROL SULFATE [Concomitant]
     Active Substance: ALBUTEROL SULFATE
  26. AMMONIUM LACTATE [Concomitant]
     Active Substance: AMMONIUM LACTATE
  27. FAMOTIDINE [Concomitant]
     Active Substance: FAMOTIDINE
  28. MIRALAX [Concomitant]
     Active Substance: POLYETHYLENE GLYCOL 3350
  29. NEURONTIN [Concomitant]
     Active Substance: GABAPENTIN

REACTIONS (5)
  - Hypersensitivity [Recovering/Resolving]
  - Dyspnoea [Recovering/Resolving]
  - Chills [Recovering/Resolving]
  - Nausea [Recovering/Resolving]
  - Vomiting [Recovering/Resolving]

NARRATIVE: CASE EVENT DATE: 20210120
